FAERS Safety Report 20223938 (Version 3)
Quarter: 2024Q2

REPORT INFORMATION
  Report Type: Spontaneous
  Country: JP (occurrence: None)
  Receive Date: 20211223
  Receipt Date: 20240409
  Transmission Date: 20240716
  Serious: Yes (Hospitalization, Other)
  Sender: FDA-Public Use
  Company Number: 2021A882864

PATIENT
  Age: 67 Year
  Sex: Male
  Weight: 73 kg

DRUGS (18)
  1. DAPAGLIFLOZIN [Suspect]
     Active Substance: DAPAGLIFLOZIN
     Indication: Type 2 diabetes mellitus
     Dosage: AFTER BREAKFAST
     Route: 048
  2. YERVOY [Suspect]
     Active Substance: IPILIMUMAB
     Indication: Lung adenocarcinoma
     Dosage: DOSE UNKNOWN
     Route: 041
     Dates: start: 20201215, end: 20201215
  3. YERVOY [Suspect]
     Active Substance: IPILIMUMAB
     Indication: Lung adenocarcinoma
     Dosage: DOSE UNKNOWN
     Route: 041
     Dates: start: 20231128, end: 20231128
  4. OPDIVO [Suspect]
     Active Substance: NIVOLUMAB
     Indication: Lung adenocarcinoma
     Dosage: DOSE UNKNOWN
     Route: 041
     Dates: start: 20201215, end: 20210601
  5. OPDIVO [Suspect]
     Active Substance: NIVOLUMAB
     Indication: Lung adenocarcinoma
     Dosage: DOSE UNKNOWN
     Route: 041
     Dates: start: 20210126, end: 20210216
  6. OPDIVO [Suspect]
     Active Substance: NIVOLUMAB
     Indication: Lung adenocarcinoma
     Dosage: DOSE UNKNOWN
     Route: 041
     Dates: start: 20210309, end: 20210330
  7. OPDIVO [Suspect]
     Active Substance: NIVOLUMAB
     Indication: Lung adenocarcinoma
     Dosage: DOSE UNKNOWN
     Route: 041
     Dates: start: 20210420, end: 20210511
  8. OPDIVO [Suspect]
     Active Substance: NIVOLUMAB
     Indication: Lung adenocarcinoma
     Dosage: DOSE UNKNOWN
     Route: 041
     Dates: start: 20210601, end: 20211005
  9. OPDIVO [Suspect]
     Active Substance: NIVOLUMAB
     Indication: Lung adenocarcinoma
     Dosage: DOSE UNKNOWN
     Route: 041
     Dates: start: 20221220
  10. OPDIVO [Suspect]
     Active Substance: NIVOLUMAB
     Indication: Lung adenocarcinoma
     Dosage: DOSE UNKNOWN
     Route: 041
     Dates: start: 20231219, end: 20231219
  11. CARBOPLATIN [Suspect]
     Active Substance: CARBOPLATIN
     Dates: start: 20201215, end: 202101
  12. PEMETREXED [Suspect]
     Active Substance: PEMETREXED
     Dates: start: 20201215, end: 202101
  13. ATORVASTATIN [Concomitant]
     Active Substance: ATORVASTATIN
     Dosage: AFTER BREAKFAST
     Route: 048
  14. AMARYL [Concomitant]
     Active Substance: GLIMEPIRIDE
     Dosage: AFTER BREAKFAST
     Route: 048
  15. CARBOPLATIN [Concomitant]
     Active Substance: CARBOPLATIN
     Indication: Lung adenocarcinoma
     Dosage: DOSE UNKNOWN
     Route: 065
     Dates: start: 20201215
  16. PEMETREXED [Concomitant]
     Active Substance: PEMETREXED
     Indication: Lung adenocarcinoma
     Dosage: DOSE UNKNOWN
     Route: 065
     Dates: start: 20201215
  17. METGLUCO [Concomitant]
     Active Substance: METFORMIN HYDROCHLORIDE
     Dosage: AFTER BREAKFAST AND EVENING MEAL
     Route: 065
     Dates: start: 20210622
  18. INSULIN NOS [Concomitant]
     Active Substance: INSULIN NOS
     Indication: Type 2 diabetes mellitus
     Dosage: DOSE UNKNOWN
     Route: 065

REACTIONS (13)
  - Secondary adrenocortical insufficiency [Not Recovered/Not Resolved]
  - Lymphocytic hypophysitis [Recovered/Resolved]
  - Hypothyroidism [Recovered/Resolved]
  - Colitis ulcerative [Recovering/Resolving]
  - Interstitial lung disease [Recovered/Resolved]
  - Pneumonitis [Unknown]
  - Hypophysitis [Unknown]
  - Thyroiditis [Unknown]
  - Rash maculo-papular [Not Recovered/Not Resolved]
  - Obesity [Not Recovered/Not Resolved]
  - Arthralgia [Unknown]
  - Blood thyroid stimulating hormone increased [Unknown]
  - Diarrhoea [Recovering/Resolving]

NARRATIVE: CASE EVENT DATE: 20210601
